FAERS Safety Report 9248122 (Version 1)
Quarter: 2013Q1

REPORT INFORMATION
  Report Type: Spontaneous
  Country: US (occurrence: None)
  Receive Date: 20130305
  Receipt Date: 20130305
  Transmission Date: 20140127
  Serious: Yes (Other)
  Sender: FDA-Public Use
  Company Number: 163-21880-12101369

PATIENT
  Age: 74 Year
  Sex: Female

DRUGS (5)
  1. REVLIMID [Suspect]
     Indication: PLASMA CELL MYELOMA
     Dosage: 06/22/2012 - UNKNOWN, 25 MG, 21 IN 21 D, PO
  2. METFORMIN HCL (METFORMIN HYDROCHLORIDE) [Concomitant]
  3. NAPROXEN (NAPROXEN) [Concomitant]
  4. GLYBURIDE (GLIBENCLAMIDE) [Concomitant]
  5. AREDIA (PAMIDRONATE DISODIUM) [Concomitant]

REACTIONS (3)
  - Local swelling [None]
  - Hypoaesthesia [None]
  - Paraesthesia [None]
